FAERS Safety Report 9217019 (Version 1)
Quarter: 2013Q2

REPORT INFORMATION
  Report Type: Spontaneous
  Country: US (occurrence: None)
  Receive Date: 20130405
  Receipt Date: 20130405
  Transmission Date: 20140414
  Serious: No
  Sender: FDA-Public Use
  Company Number: None

PATIENT
  Age: 34 Year
  Sex: Male
  Weight: 70.31 kg

DRUGS (3)
  1. BUPROPION [Suspect]
     Dosage: 1/DAY DAILY PO
     Route: 048
     Dates: start: 20130323, end: 20130404
  2. BUPROPION [Suspect]
     Indication: ADVERSE DRUG REACTION
     Dosage: 1/DAY DAILY PO
     Route: 048
     Dates: start: 20130323, end: 20130404
  3. BUPROPION [Suspect]
     Indication: DRUG THERAPY
     Dosage: 1/DAY DAILY PO
     Route: 048
     Dates: start: 20130323, end: 20130404

REACTIONS (6)
  - Diarrhoea [None]
  - Disease recurrence [None]
  - Irritability [None]
  - Depressed mood [None]
  - Product substitution issue [None]
  - Product quality issue [None]
